FAERS Safety Report 4965111-0 (Version None)
Quarter: 2006Q1

REPORT INFORMATION
  Report Type: 
  Country: None (occurrence: None)
  Receive Date: 20060201
  Receipt Date: 20051012
  Transmission Date: 20060701
  Serious: No
  Sender: FDA-Public Use
  Company Number: 2005PV003128

PATIENT
  Age: 74 Year
  Sex: Female
  Weight: 77.1115 kg

DRUGS (8)
  1. BYETTA [Suspect]
     Indication: DIABETES MELLITUS NON-INSULIN-DEPENDENT
     Dosage: 5 MCG;BID;SC
     Route: 058
     Dates: start: 20051009
  2. ACTOS [Concomitant]
  3. GLIPIZIDE [Concomitant]
  4. GLUCOPHAGE [Concomitant]
  5. SYNTHROID [Concomitant]
  6. AVAPRO [Concomitant]
  7. NORVASC [Concomitant]
  8. CRESTOR [Concomitant]

REACTIONS (3)
  - BLOOD GLUCOSE INCREASED [None]
  - DRUG INEFFECTIVE [None]
  - WEIGHT DECREASED [None]
